FAERS Safety Report 19933319 (Version 2)
Quarter: 2021Q4

REPORT INFORMATION
  Report Type: Spontaneous
  Country: LT (occurrence: LT)
  Receive Date: 20211008
  Receipt Date: 20211210
  Transmission Date: 20220303
  Serious: Yes (Hospitalization, Other)
  Sender: FDA-Public Use
  Company Number: None

PATIENT
  Age: 43 Year
  Sex: Female

DRUGS (14)
  1. AMITRIPTYLINE [Suspect]
     Active Substance: AMITRIPTYLINE
     Indication: Schizoaffective disorder
     Dosage: UNKNOWN
     Route: 065
     Dates: start: 2014
  2. CHLORPROMAZINE [Suspect]
     Active Substance: CHLORPROMAZINE
     Indication: Schizophrenia
     Route: 065
  3. CLOMIPRAMINE [Suspect]
     Active Substance: CLOMIPRAMINE
     Indication: Schizoaffective disorder
     Dosage: UNKNOWN
     Route: 065
  4. CLONAZEPAM [Suspect]
     Active Substance: CLONAZEPAM
     Indication: Schizophrenia
     Dosage: UNKNOWN
     Route: 065
  5. LORAZEPAM [Suspect]
     Active Substance: LORAZEPAM
     Indication: Schizoaffective disorder
     Dosage: UNKNOWN
     Route: 065
  6. MEDAZEPAM [Suspect]
     Active Substance: MEDAZEPAM
     Indication: Schizoaffective disorder
     Dosage: UNKNOWN
     Route: 065
     Dates: start: 2014
  7. OLANZAPINE [Suspect]
     Active Substance: OLANZAPINE
     Indication: Schizophrenia
     Route: 065
     Dates: start: 2015
  8. OLANZAPINE [Suspect]
     Active Substance: OLANZAPINE
     Indication: Schizophrenia
     Route: 065
     Dates: start: 2018
  9. PALIPERIDONE PALMITATE [Suspect]
     Active Substance: PALIPERIDONE PALMITATE
     Indication: Schizophrenia
     Route: 030
  10. PERPHENAZINE [Suspect]
     Active Substance: PERPHENAZINE
     Indication: Schizoaffective disorder
     Dosage: UNKNOWN
     Route: 065
     Dates: start: 2014
  11. RISPERIDONE [Suspect]
     Active Substance: RISPERIDONE
     Indication: Schizophrenia
     Dosage: UNKNOWN
  12. TRIFLUOPERAZINE [Suspect]
     Active Substance: TRIFLUOPERAZINE HYDROCHLORIDE
     Indication: Schizoaffective disorder
     Dosage: UNKNOWN
  13. TRIHEXYPHENIDYL [Suspect]
     Active Substance: TRIHEXYPHENIDYL
     Indication: Schizophrenia
     Dosage: UNKNOWN
  14. CLONAZEPAM [Concomitant]
     Active Substance: CLONAZEPAM
     Indication: Irritability
     Dosage: 2 MILLIGRAM, QD
     Route: 065

REACTIONS (10)
  - Tardive dyskinesia [Recovering/Resolving]
  - Intentional product misuse [Unknown]
  - Abulia [Unknown]
  - Weight increased [Unknown]
  - Onychophagia [Unknown]
  - Disturbance in social behaviour [Unknown]
  - Hair texture abnormal [Unknown]
  - Tension [Unknown]
  - Hyperhidrosis [Unknown]
  - Apathy [Unknown]
